FAERS Safety Report 6131649-6 (Version None)
Quarter: 2009Q1

REPORT INFORMATION
  Report Type: 
  Country: None (occurrence: None)
  Receive Date: 20090325
  Receipt Date: 20090107
  Transmission Date: 20090719
  Serious: Yes (Other)
  Sender: FDA-Public Use
  Company Number: US-BRISTOL-MYERS SQUIBB COMPANY-14462832

PATIENT

DRUGS (7)
  1. ERBITUX [Suspect]
     Indication: COLON CANCER
  2. FLUOROURACIL [Suspect]
     Indication: COLON CANCER
  3. FOLINIC ACID [Suspect]
     Indication: COLON CANCER
  4. OXALIPLATIN [Suspect]
     Indication: COLON CANCER
  5. IRINOTECAN HCL [Suspect]
     Indication: COLON CANCER
  6. AVASTIN [Suspect]
     Indication: COLON CANCER
  7. TARCEVA [Suspect]
     Indication: COLON CANCER

REACTIONS (1)
  - DRUG INEFFECTIVE [None]
